FAERS Safety Report 5760231-5 (Version None)
Quarter: 2008Q2

REPORT INFORMATION
  Report Type: 
  Country: None (occurrence: None)
  Receive Date: 20080602
  Receipt Date: 20080520
  Transmission Date: 20081010
  Serious: Yes (Hospitalization)
  Sender: FDA-Public Use
  Company Number: 2008013449

PATIENT
  Sex: Female

DRUGS (1)
  1. DRAMAMINE [Suspect]
     Indication: DRUG ABUSE
     Dosage: UNSPECIFIED, ORAL
     Route: 048

REACTIONS (3)
  - DRUG ABUSE [None]
  - EUPHORIC MOOD [None]
  - HALLUCINATION [None]
